FAERS Safety Report 8823963 (Version 2)
Quarter: 2012Q4

REPORT INFORMATION
  Report Type: 
  Country: US (occurrence: US)
  Receive Date: 20121003
  Receipt Date: 20121022
  Transmission Date: 20130627
  Serious: Yes (Disabling, Other)
  Sender: FDA-Public Use
  Company Number: US-PFIZER INC-2012241139

PATIENT
  Age: 57 Year
  Sex: Male
  Weight: 99.77 kg

DRUGS (7)
  1. VIAGRA [Suspect]
     Indication: ERECTILE DYSFUNCTION
     Dosage: 100 mg, UNK
     Route: 048
  2. LOSARTAN [Concomitant]
     Indication: HYPERTENSION
     Dosage: 100 mg, daily
  3. SIMVASTATIN [Concomitant]
     Indication: BLOOD CHOLESTEROL INCREASED
     Dosage: 20 mg, daily
  4. HYDROCHLOROTHIAZIDE [Concomitant]
     Indication: HYPERTENSION
     Dosage: 25 mg, daily
  5. CLONAZEPAM [Concomitant]
     Indication: ANXIETY
     Dosage: 2 mg, 2x/day
  6. GEMFIBROZIL [Concomitant]
     Indication: BLOOD CHOLESTEROL INCREASED
     Dosage: 600 mg, 2x/day
  7. OXYCODONE [Concomitant]
     Indication: BACK PAIN
     Dosage: 5/25 mg, as needed

REACTIONS (2)
  - Mental disorder [Unknown]
  - Intentional drug misuse [Unknown]
